FAERS Safety Report 22002225 (Version 3)
Quarter: 2023Q1

REPORT INFORMATION
  Report Type: Spontaneous
  Country: US (occurrence: US)
  Receive Date: 20230217
  Receipt Date: 20230303
  Transmission Date: 20230418
  Serious: Yes (Death, Hospitalization, Other)
  Sender: FDA-Public Use
  Company Number: US-MTPC-MTDA2023-0004484

PATIENT

DRUGS (8)
  1. RADICAVA [Suspect]
     Active Substance: EDARAVONE
     Indication: Amyotrophic lateral sclerosis
     Dosage: STARTER DOSE DAILY X 14 DAYS ON, THEN 14 DAYS OFF
     Route: 065
     Dates: start: 202211
  2. RADICAVA [Suspect]
     Active Substance: EDARAVONE
     Indication: Amyotrophic lateral sclerosis
     Dosage: STARTER DOSE DAILY X 14 DAYS ON, THEN 14 DAYS OFF
     Route: 065
     Dates: start: 202211
  3. RADICAVA [Suspect]
     Active Substance: EDARAVONE
     Dosage: UNK, DAINLY 10 OUT OF 14 DAYS THEN 14 DAYS OFF
     Route: 065
  4. RADICAVA [Suspect]
     Active Substance: EDARAVONE
     Dosage: UNK, DAINLY 10 OUT OF 14 DAYS THEN 14 DAYS OFF
     Route: 065
  5. RILUZOLE [Concomitant]
     Active Substance: RILUZOLE
     Indication: Product used for unknown indication
     Dosage: 50 MILLIGRAM, BID
     Route: 048
  6. MUCOMYST [Concomitant]
     Active Substance: ACETYLCYSTEINE
     Indication: Product used for unknown indication
     Dosage: 1 PERCENT, QID
     Route: 065
  7. ALBUTEROL [Concomitant]
     Active Substance: ALBUTEROL
     Indication: Product used for unknown indication
     Dosage: 5 MG/DL, QID AS NEEDED
     Route: 065
  8. LOSARTAN [Concomitant]
     Active Substance: LOSARTAN
     Indication: Product used for unknown indication
     Dosage: 100 MILLIGRAM, QD
     Route: 048

REACTIONS (4)
  - Pneumonia [Unknown]
  - Dyspnoea [Unknown]
  - Cardiac arrest [Fatal]
  - Asthenia [Unknown]

NARRATIVE: CASE EVENT DATE: 20221105
